FAERS Safety Report 9648320 (Version 1)
Quarter: 2013Q4

REPORT INFORMATION
  Report Type: Spontaneous
  Country: US (occurrence: US)
  Receive Date: 20131028
  Receipt Date: 20131028
  Transmission Date: 20140711
  Serious: No
  Sender: FDA-Public Use
  Company Number: US-PFIZER INC-2013307072

PATIENT
  Sex: Female

DRUGS (4)
  1. ZOLOFT [Suspect]
     Indication: DEPRESSION
     Dosage: 50 MG, 1X/DAY
     Route: 048
     Dates: start: 201309, end: 201310
  2. ZOLOFT [Suspect]
     Dosage: 100 MG, 1X/DAY
     Route: 048
     Dates: start: 201310
  3. XANAX [Concomitant]
     Dosage: UNK
  4. PROGESTERONE [Concomitant]
     Indication: HORMONE THERAPY
     Dosage: 50 MG, UNK

REACTIONS (3)
  - Drug ineffective [Unknown]
  - Nervousness [Unknown]
  - Tremor [Unknown]
